FAERS Safety Report 9199792 (Version 3)
Quarter: 2013Q4

REPORT INFORMATION
  Report Type: Report from Study
  Country: CA (occurrence: CA)
  Receive Date: 20130329
  Receipt Date: 20131029
  Transmission Date: 20140711
  Serious: Yes (Other)
  Sender: FDA-Public Use
  Company Number: CA-JNJFOC-20130316231

PATIENT
  Age: 70 Year
  Sex: Male

DRUGS (5)
  1. SIMPONI [Suspect]
     Indication: CROHN^S DISEASE
  2. SIMPONI [Suspect]
     Indication: CROHN^S DISEASE
  3. SIMPONI [Suspect]
     Indication: CROHN^S DISEASE
  4. SIMPONI [Suspect]
     Indication: CROHN^S DISEASE
     Dates: start: 20130314
  5. SIMPONI [Suspect]
     Indication: CROHN^S DISEASE
     Dates: start: 20130508

REACTIONS (1)
  - Wound infection [Recovered/Resolved]
